FAERS Safety Report 11314617 (Version 1)
Quarter: 2015Q3

REPORT INFORMATION
  Report Type: Spontaneous
  Country: JP (occurrence: JP)
  Receive Date: 20150727
  Receipt Date: 20150727
  Transmission Date: 20151125
  Serious: Yes (Death)
  Sender: FDA-Public Use
  Company Number: JP-BAYER-2014-168692

PATIENT
  Age: 58 Year
  Sex: Female
  Weight: 43 kg

DRUGS (13)
  1. STIVARGA [Suspect]
     Active Substance: REGORAFENIB
     Indication: COLORECTAL CANCER
     Dosage: 80 MG, QD
     Route: 048
     Dates: start: 20140807, end: 20140924
  2. STIVARGA [Suspect]
     Active Substance: REGORAFENIB
     Indication: COLORECTAL CANCER
     Dosage: 40 MG, QD
     Route: 048
     Dates: start: 20141106, end: 20141110
  3. STIVARGA [Suspect]
     Active Substance: REGORAFENIB
     Indication: COLORECTAL CANCER
     Dosage: 80 MG, QD
     Route: 048
     Dates: start: 20140604, end: 20140610
  4. STOMAZEPIN [Concomitant]
     Dosage: UNK
     Route: 048
  5. POLAPREZINC [Concomitant]
     Active Substance: POLAPREZINC
     Indication: COLON CANCER
     Dosage: DAILY DOSE 25 MG
     Route: 048
  6. LANSOPRAZOLE. [Concomitant]
     Active Substance: LANSOPRAZOLE
     Indication: COLON CANCER
     Dosage: DAILY DOSE 30 MG
     Route: 048
  7. PROMAC [POLAPREZINC] [Concomitant]
     Active Substance: POLAPREZINC
     Dosage: UNK
     Route: 048
  8. DECADRON [Concomitant]
     Active Substance: DEXAMETHASONE
     Dosage: UNK
  9. CALONAL [Concomitant]
     Active Substance: ACETAMINOPHEN
     Indication: COLON CANCER
     Dosage: DAILY DOSE 300 MG
  10. ZOLPIDEM TARTRATE. [Concomitant]
     Active Substance: ZOLPIDEM TARTRATE
     Indication: COLON CANCER
     Dosage: DAILY DOSE 5 MG
     Route: 048
  11. FUROSEMIDE. [Concomitant]
     Active Substance: FUROSEMIDE
     Indication: COLON CANCER
     Dosage: DAILY DOSE 20 MG
     Route: 048
  12. SPIRONOLACTONE. [Concomitant]
     Active Substance: SPIRONOLACTONE
     Indication: COLON CANCER
     Dosage: DAILY DOSE 20 MG
     Route: 048
  13. STIVARGA [Suspect]
     Active Substance: REGORAFENIB
     Indication: COLORECTAL CANCER
     Dosage: 40 MG, QD
     Route: 048
     Dates: start: 20140618, end: 20140701

REACTIONS (2)
  - Stomatitis [Recovered/Resolved]
  - Colon cancer [Fatal]

NARRATIVE: CASE EVENT DATE: 20141112
